FAERS Safety Report 25826267 (Version 3)
Quarter: 2025Q4

REPORT INFORMATION
  Report Type: Report from Study
  Country: US (occurrence: US)
  Receive Date: 20250919
  Receipt Date: 20251021
  Transmission Date: 20260118
  Serious: Yes (Hospitalization, Other)
  Sender: ABBVIE
  Company Number: US-ABBVIE-6465745

PATIENT
  Age: 16 Year
  Sex: Male

DRUGS (2)
  1. VENCLEXTA [Suspect]
     Active Substance: VENETOCLAX
     Indication: Product used for unknown indication
     Route: 048
  2. REVUFORJ [Concomitant]
     Active Substance: REVUMENIB CITRATE
     Indication: Myeloid leukaemia
     Dates: start: 20250910

REACTIONS (20)
  - Fungal infection [Unknown]
  - Blood potassium increased [Unknown]
  - Blood urea increased [Unknown]
  - Blood creatinine increased [Unknown]
  - Dehydration [Unknown]
  - Hospitalisation [Unknown]
  - Renal disorder [Unknown]
  - Blood pressure increased [Recovering/Resolving]
  - Turbinectomy [Unknown]
  - Regurgitation [Unknown]
  - Investigation abnormal [Unknown]
  - Renal disorder [Recovered/Resolved]
  - Nausea [Unknown]
  - Blood potassium decreased [Unknown]
  - Blood magnesium decreased [Unknown]
  - Blood phosphorus decreased [Unknown]
  - Electrolyte imbalance [Unknown]
  - Vomiting [Unknown]
  - White blood cell count decreased [Unknown]
  - Neutrophil count decreased [Unknown]

NARRATIVE: CASE EVENT DATE: 20250101
